FAERS Safety Report 6429782-4 (Version None)
Quarter: 2009Q4

REPORT INFORMATION
  Report Type: 
  Country: None (occurrence: None)
  Receive Date: 20091106
  Receipt Date: 20091023
  Transmission Date: 20100525
  Serious: Yes (Other)
  Sender: FDA-Public Use
  Company Number: PHHY2009JP46527

PATIENT
  Sex: Male

DRUGS (2)
  1. GLEEVEC [Suspect]
     Indication: CHRONIC MYELOID LEUKAEMIA
     Dosage: 400 MG/DAY
     Route: 048
     Dates: start: 20070110, end: 20070210
  2. INTERFERON BETA [Concomitant]
     Indication: CHRONIC MYELOID LEUKAEMIA
     Dosage: 600 U, UNK
     Route: 058
     Dates: start: 20070211, end: 20090325

REACTIONS (4)
  - HEPATIC FUNCTION ABNORMAL [None]
  - JAUNDICE [None]
  - PYREXIA [None]
  - RASH [None]
